FAERS Safety Report 5692001-0 (Version None)
Quarter: 2008Q2

REPORT INFORMATION
  Report Type: 
  Country: None (occurrence: None)
  Receive Date: 20080402
  Receipt Date: 20080328
  Transmission Date: 20081010
  Serious: Yes (Hospitalization)
  Sender: FDA-Public Use
  Company Number: GB-TEVA-169378ISR

PATIENT
  Age: 6 Year
  Sex: Male

DRUGS (1)
  1. PREDNISOLONE [Suspect]
     Indication: DUCHENNE MUSCULAR DYSTROPHY
     Dosage: 0.74 MG/KG

REACTIONS (2)
  - MYOGLOBINURIA [None]
  - RHABDOMYOLYSIS [None]
